FAERS Safety Report 13360016 (Version 1)
Quarter: 2017Q1

REPORT INFORMATION
  Report Type: Report from Study
  Country: PT (occurrence: PT)
  Receive Date: 20170322
  Receipt Date: 20170322
  Transmission Date: 20170429
  Serious: Yes (Other)
  Sender: FDA-Public Use
  Company Number: PT-JNJFOC-20170318718

PATIENT
  Age: 78 Year

DRUGS (13)
  1. RITONAVIR. [Suspect]
     Active Substance: RITONAVIR
     Indication: HIV INFECTION
     Route: 065
     Dates: start: 200803
  2. CALCIUM FOLINATE [Concomitant]
     Active Substance: LEUCOVORIN CALCIUM
     Route: 065
  3. DARUNAVIR [Suspect]
     Active Substance: DARUNAVIR
     Indication: HIV INFECTION
     Route: 048
     Dates: start: 200803
  4. ACETYLSALICYLIC ACID [Concomitant]
     Active Substance: ASPIRIN
     Route: 065
  5. WARFARIN [Concomitant]
     Active Substance: WARFARIN
     Route: 065
  6. PRAVASTATIN. [Concomitant]
     Active Substance: PRAVASTATIN
     Route: 065
  7. SERTRALINE [Concomitant]
     Active Substance: SERTRALINE HYDROCHLORIDE
     Route: 065
  8. CARVEDILOL. [Concomitant]
     Active Substance: CARVEDILOL
     Route: 065
  9. LAMIVUDINE/ZIDOVUDINE [Suspect]
     Active Substance: LAMIVUDINE\ZIDOVUDINE
     Indication: HIV INFECTION
     Route: 065
     Dates: start: 200803
  10. BISOPROLOL [Concomitant]
     Active Substance: BISOPROLOL
     Route: 065
  11. CLOPIDOGREL [Concomitant]
     Active Substance: CLOPIDOGREL BISULFATE
     Route: 065
  12. PRAVASTATIN. [Concomitant]
     Active Substance: PRAVASTATIN
     Route: 065
  13. COTRIMOXAZOLE [Concomitant]
     Active Substance: SULFAMETHOXAZOLE\TRIMETHOPRIM
     Route: 065

REACTIONS (1)
  - Ischaemic stroke [Unknown]
